FAERS Safety Report 9638709 (Version 1)
Quarter: 2013Q4

REPORT INFORMATION
  Report Type: Spontaneous
  Country: US (occurrence: None)
  Receive Date: 20131018
  Receipt Date: 20131018
  Transmission Date: 20140711
  Serious: Yes (Other)
  Sender: FDA-Public Use
  Company Number: ABR_01197_2013

PATIENT
  Sex: Male

DRUGS (1)
  1. EDARBI [Suspect]
     Indication: HYPERTENSION
     Dosage: (DF)
     Dates: end: 2013

REACTIONS (3)
  - Hypotension [None]
  - Convulsion [None]
  - Visual impairment [None]
